FAERS Safety Report 10691219 (Version 1)
Quarter: 2015Q1

REPORT INFORMATION
  Report Type: Other
  Country: DE (occurrence: DE)
  Receive Date: 20150105
  Receipt Date: 20150105
  Transmission Date: 20150720
  Serious: Yes (Hospitalization)
  Sender: FDA-Public Use
  Company Number: DE-MYLANLABS-2014M1015469

PATIENT

DRUGS (15)
  1. TORASEMID [Interacting]
     Active Substance: TORSEMIDE
     Dosage: UNK
  2. RISPERDAL [Interacting]
     Active Substance: RISPERIDONE
     Dosage: 1 MG, UNK
     Dates: start: 20120802
  3. IBUPROFEN. [Interacting]
     Active Substance: IBUPROFEN
     Dosage: UNK
  4. SIMVAGAMMA [Concomitant]
  5. CLEXANE [Concomitant]
     Active Substance: ENOXAPARIN SODIUM
  6. RISPERDAL [Interacting]
     Active Substance: RISPERIDONE
     Dosage: 1.5 MG, UNK
     Dates: start: 20120723, end: 20120801
  7. FUROSEMIDE. [Interacting]
     Active Substance: FUROSEMIDE
     Dosage: UNK
  8. ACTRAPID [Concomitant]
     Active Substance: INSULIN HUMAN
     Dosage: 24 IU, UNK
     Dates: start: 20120703, end: 20120731
  9. PLASTULEN [Concomitant]
     Dosage: 2 KAPSELN/DAY
     Dates: start: 20120608, end: 20120731
  10. VALSARTAN. [Concomitant]
     Active Substance: VALSARTAN
  11. MELPERONE [Concomitant]
     Active Substance: MELPERONE
  12. RISPERDAL [Suspect]
     Active Substance: RISPERIDONE
     Dosage: 1 MG, UNK
     Dates: start: 20120720, end: 20120722
  13. ASPIRIN. [Concomitant]
     Active Substance: ASPIRIN
  14. PANTOZOL [Concomitant]
     Active Substance: PANTOPRAZOLE SODIUM
  15. RISPERDAL [Interacting]
     Active Substance: RISPERIDONE
     Dosage: 0.5 MG, UNK
     Dates: start: 20120803

REACTIONS (2)
  - Drug interaction [Unknown]
  - Thrombocytopenia [Recovered/Resolved]

NARRATIVE: CASE EVENT DATE: 20120731
